FAERS Safety Report 5751320-X (Version None)
Quarter: 2008Q2

REPORT INFORMATION
  Report Type: 
  Country: None (occurrence: None)
  Receive Date: 20080528
  Receipt Date: 20080522
  Transmission Date: 20081010
  Serious: Yes (Hospitalization)
  Sender: FDA-Public Use
  Company Number: AU-ABBOTT-08P-008-0453067-00

PATIENT
  Age: 15 Year
  Sex: Male
  Weight: 69 kg

DRUGS (8)
  1. SEVORANE [Suspect]
     Indication: SENSORY DISTURBANCE
     Route: 055
  2. FENTANYL-100 [Suspect]
     Indication: SENSORY DISTURBANCE
     Route: 050
  3. MIDAZOLAM HCL [Suspect]
     Indication: SENSORY DISTURBANCE
     Route: 042
  4. NITROUS OXIDE [Suspect]
     Indication: SENSORY DISTURBANCE
     Route: 055
  5. PROPOFOL [Suspect]
     Indication: SENSORY DISTURBANCE
     Route: 042
  6. MORPHINE NOS [Concomitant]
     Indication: DRUG USE FOR UNKNOWN INDICATION
     Dosage: NOT REPORTED
     Route: 065
  7. ACETAMINOPHEN [Concomitant]
     Indication: DRUG USE FOR UNKNOWN INDICATION
     Route: 048
  8. PARECOXIB SODIUM [Concomitant]
     Indication: DRUG USE FOR UNKNOWN INDICATION
     Dosage: NOT REPORTED
     Route: 065

REACTIONS (3)
  - HEMIPARESIS [None]
  - MIGRAINE WITH AURA [None]
  - SENSORY LOSS [None]
